FAERS Safety Report 20674129 (Version 1)
Quarter: 2022Q2

REPORT INFORMATION
  Report Type: Spontaneous
  Country: US (occurrence: US)
  Receive Date: 20220405
  Receipt Date: 20220405
  Transmission Date: 20220721
  Serious: Yes (Other)
  Sender: FDA-Public Use
  Company Number: US-BTGSP-US-BTGSP-22-0039

PATIENT
  Age: 56 Year
  Sex: Male

DRUGS (1)
  1. CROFAB [Suspect]
     Active Substance: CROTALIDAE POLYVALENT IMMUNE FAB (OVINE)
     Indication: Snake bite
     Dosage: 6 VIALS IN 250 CC
     Route: 042
     Dates: start: 20220326

REACTIONS (4)
  - Bradycardia [Unknown]
  - Choking sensation [Unknown]
  - Hypotension [Unknown]
  - Vomiting [Unknown]
